FAERS Safety Report 6294862-3 (Version None)
Quarter: 2009Q3

REPORT INFORMATION
  Report Type: 
  Country: None (occurrence: None)
  Receive Date: 20090731
  Receipt Date: 20090731
  Transmission Date: 20100115
  Serious: Yes (Hospitalization)
  Sender: FDA-Public Use
  Company Number: None

PATIENT
  Age: 62 Year
  Sex: Male
  Weight: 102.1 kg

DRUGS (1)
  1. SORAFENIB 200MG BAYER [Suspect]
     Indication: RENAL CANCER METASTATIC
     Dosage: 200MG, BID Q OTHER DAY, PO
     Route: 048
     Dates: start: 20090627

REACTIONS (2)
  - JOINT CREPITATION [None]
  - SKIN REACTION [None]
